FAERS Safety Report 5780437-9 (Version None)
Quarter: 2008Q2

REPORT INFORMATION
  Report Type: 
  Country: None (occurrence: None)
  Receive Date: 20080620
  Receipt Date: 20080611
  Transmission Date: 20081010
  Serious: Yes (Other)
  Sender: FDA-Public Use
  Company Number: JP-MERCK-0806USA02937

PATIENT
  Age: 40 Year
  Sex: Male

DRUGS (1)
  1. PROPECIA [Suspect]
     Indication: ANDROGENETIC ALOPECIA
     Route: 048
     Dates: start: 20080301, end: 20080611

REACTIONS (1)
  - BLOOD CREATINE PHOSPHOKINASE INCREASED [None]
